FAERS Safety Report 12545490 (Version 5)
Quarter: 2016Q3

REPORT INFORMATION
  Report Type: Spontaneous
  Country: BR (occurrence: BR)
  Receive Date: 20160711
  Receipt Date: 20160822
  Transmission Date: 20161109
  Serious: Yes (Hospitalization, Other)
  Sender: FDA-Public Use
  Company Number: BR-PFIZER INC-2016327676

PATIENT
  Age: 20 Year
  Sex: Female

DRUGS (7)
  1. HALOPERIDOL. [Suspect]
     Active Substance: HALOPERIDOL
     Indication: EPILEPSY
     Dosage: UNK
  2. VALPROIC ACID. [Suspect]
     Active Substance: VALPROIC ACID
     Indication: NEUROPSYCHIATRIC SYNDROME
  3. CLAVULANATE AMOXICILLIN [Suspect]
     Active Substance: AMOXICILLIN\CLAVULANATE POTASSIUM
     Indication: SOFT TISSUE INFECTION
     Dosage: UNK
  4. DIAZEPAM. [Suspect]
     Active Substance: DIAZEPAM
     Dosage: UNK
  5. HALOPERIDOL. [Suspect]
     Active Substance: HALOPERIDOL
     Indication: NEUROPSYCHIATRIC SYNDROME
  6. AZITHROMYCIN ANHYDROUS. [Suspect]
     Active Substance: AZITHROMYCIN ANHYDROUS
     Indication: SOFT TISSUE INFECTION
     Dosage: UNK
  7. VALPROIC ACID. [Suspect]
     Active Substance: VALPROIC ACID
     Indication: EPILEPSY
     Dosage: UNK

REACTIONS (1)
  - Drug reaction with eosinophilia and systemic symptoms [Recovering/Resolving]

NARRATIVE: CASE EVENT DATE: 20140521
